FAERS Safety Report 5219106-2 (Version None)
Quarter: 2007Q1

REPORT INFORMATION
  Report Type: 
  Country: None (occurrence: None)
  Receive Date: 20070124
  Receipt Date: 20070124
  Transmission Date: 20070707
  Serious: Yes (Other)
  Sender: FDA-Public Use
  Company Number: None

PATIENT
  Age: 61 Year
  Sex: Female
  Weight: 61.2356 kg

DRUGS (1)
  1. ZOMETA [Suspect]
     Indication: PARAGANGLION NEOPLASM MALIGNANT
     Dosage: IV   RECEIVED IT FOR 6-8 MONTHS
     Route: 042

REACTIONS (3)
  - OSTEONECROSIS [None]
  - POST PROCEDURAL COMPLICATION [None]
  - TOOTH EXTRACTION [None]
